FAERS Safety Report 5586127-X (Version None)
Quarter: 2007Q4

REPORT INFORMATION
  Report Type: 
  Country: None (occurrence: None)
  Receive Date: 20071205
  Receipt Date: 20070103
  Transmission Date: 20080405
  Serious: Yes (Death)
  Sender: FDA-Public Use
  Company Number: HQWYE109021DEC05

PATIENT
  Age: 29 Year
  Sex: Male
  Weight: 104.42 kg

DRUGS (7)
  1. EFFEXOR XR [Suspect]
     Indication: ANXIETY
  2. EFFEXOR XR [Suspect]
     Indication: DEPRESSION
  3. NEURONTIN [Suspect]
     Dosage: 600 MG 2X PER 1 DAY ; 600 MG 3X PER 1 DAY ; 300 MG 2X PER 1 D
     Dates: start: 20030127, end: 20030302
  4. NEURONTIN [Suspect]
     Dosage: 600 MG 2X PER 1 DAY ; 600 MG 3X PER 1 DAY ; 300 MG 2X PER 1 D
     Dates: start: 20030303, end: 20030406
  5. NEURONTIN [Suspect]
     Dosage: 600 MG 2X PER 1 DAY ; 600 MG 3X PER 1 DAY ; 300 MG 2X PER 1 D
     Dates: start: 20030407
  6. PREVACID [Concomitant]
  7. VISTARIL [Concomitant]

REACTIONS (1)
  - COMPLETED SUICIDE [None]
